FAERS Safety Report 4799698-8 (Version None)
Quarter: 2005Q4

REPORT INFORMATION
  Report Type: 
  Country: None (occurrence: None)
  Receive Date: 20051013
  Receipt Date: 20050927
  Transmission Date: 20060501
  Serious: Yes (Hospitalization)
  Sender: FDA-Public Use
  Company Number: 2005135052

PATIENT
  Age: 57 Year
  Sex: Male

DRUGS (8)
  1. FLUCONAZOLE [Suspect]
     Indication: ORAL FUNGAL INFECTION
     Dosage: ORAL
     Route: 048
     Dates: start: 20050718, end: 20050723
  2. AMOXICILLIN [Suspect]
     Indication: TOOTHACHE
     Dosage: 2 GRAM (INTERVAL: EVERY DAY), ORAL
     Route: 048
     Dates: start: 20050710, end: 20050723
  3. ACETAMINOPHEN [Suspect]
     Indication: ILL-DEFINED DISORDER
     Dosage: 1 GRAM (INTERVAL: EVERY DAY), ORAL  2-3 DAYS
     Route: 048
  4. AMLODIPINE [Concomitant]
  5. PROGRAF [Concomitant]
  6. EUPANTOL (PANTOPRAZOLE) [Concomitant]
  7. SODIUM SELENITE (SODIUM SELENITE) [Concomitant]
  8. IMODIUM (LOPERAMIDE HYDROCHLORIDE, SIMETICONE) [Concomitant]

REACTIONS (10)
  - BLOOD CREATININE INCREASED [None]
  - CHOLESTASIS [None]
  - CHRONIC HEPATITIS [None]
  - CYTOMEGALOVIRUS INFECTION [None]
  - DRUG INTERACTION [None]
  - DRUG LEVEL INCREASED [None]
  - EPSTEIN-BARR VIRUS ANTIBODY POSITIVE [None]
  - HERPES SIMPLEX SEROLOGY POSITIVE [None]
  - SPLENOMEGALY [None]
  - THROMBOCYTOPENIA [None]
